FAERS Safety Report 6256084-1 (Version None)
Quarter: 2009Q2

REPORT INFORMATION
  Report Type: 
  Country: None (occurrence: None)
  Receive Date: 20090630
  Receipt Date: 20090630
  Transmission Date: 20091009
  Serious: Yes (Hospitalization)
  Sender: FDA-Public Use
  Company Number: None

PATIENT
  Age: 6 Year
  Sex: Male

DRUGS (1)
  1. NITROUS OXIDE [Suspect]
     Indication: TOOTH DISORDER
     Route: 055
     Dates: start: 20090625, end: 20090625

REACTIONS (7)
  - CHOKING [None]
  - COUGH [None]
  - DEPRESSED LEVEL OF CONSCIOUSNESS [None]
  - GRAND MAL CONVULSION [None]
  - PO2 DECREASED [None]
  - PYREXIA [None]
  - SOMNOLENCE [None]
